FAERS Safety Report 19913920 (Version 1)
Quarter: 2021Q4

REPORT INFORMATION
  Report Type: Spontaneous
  Country: DE (occurrence: DE)
  Receive Date: 20211004
  Receipt Date: 20211004
  Transmission Date: 20220304
  Serious: Yes (Hospitalization, Congenital Anomaly, Other)
  Sender: FDA-Public Use
  Company Number: DE-NOVARTISPH-NVSC2021DE220110

PATIENT
  Age: 1 Day
  Sex: Male
  Weight: 3.34 kg

DRUGS (1)
  1. OLANZAPINE [Suspect]
     Active Substance: OLANZAPINE
     Indication: Sleep disorder
     Dosage: MATERNAL DOSE 5 [MG/D (BIS 2.5) ]/ INITIAL 5MG DAILY, LAST MONTH 2.5MG DAILY
     Route: 064
     Dates: start: 20200310, end: 20201223

REACTIONS (4)
  - Neonatal hypotension [Recovered/Resolved]
  - Atrial septal defect [Not Recovered/Not Resolved]
  - Bradycardia neonatal [Recovered/Resolved]
  - Foetal exposure during pregnancy [Unknown]

NARRATIVE: CASE EVENT DATE: 20201223
